FAERS Safety Report 24309698 (Version 1)
Quarter: 2024Q3

REPORT INFORMATION
  Report Type: Report from Study
  Country: ZA (occurrence: None)
  Receive Date: 20240912
  Receipt Date: 20240912
  Transmission Date: 20241017
  Serious: Yes (Death)
  Sender: ASTRAZENECA
  Company Number: 2024A205423

PATIENT
  Age: 74 Year
  Sex: Male

DRUGS (8)
  1. DAPAGLIFLOZIN PROPANEDIOL [Suspect]
     Active Substance: DAPAGLIFLOZIN PROPANEDIOL
     Indication: Diabetes mellitus
     Dosage: 10.0MG UNKNOWN
     Route: 048
  2. LIPOGEN [Concomitant]
     Indication: Blood cholesterol
     Dosage: 10.0MG UNKNOWN
     Route: 048
  3. VILDAGLIPTIN [Concomitant]
     Active Substance: VILDAGLIPTIN
     Indication: Diabetes mellitus
     Dosage: 50.0MG UNKNOWN
     Route: 048
  4. METFORMIN HYDROCHLORIDE [Concomitant]
     Active Substance: METFORMIN HYDROCHLORIDE
     Indication: Diabetes mellitus
     Dosage: 1000.0MG UNKNOWN
     Route: 048
  5. DORMONOCT [Concomitant]
     Active Substance: LOPRAZOLAM
     Indication: Somnolence
     Dosage: 2.0MG UNKNOWN
     Route: 048
  6. BUTYLSCOPOLAMINE BROMIDE [Concomitant]
     Active Substance: BUTYLSCOPOLAMINE BROMIDE
     Dosage: 10.0MG UNKNOWN
     Route: 048
  7. ACCORD GLIMEPIRIDE [Concomitant]
     Indication: Diabetes mellitus
     Dosage: 4.0MG UNKNOWN
     Route: 048
  8. LOSARTAN POTASSIUM [Concomitant]
     Active Substance: LOSARTAN POTASSIUM
     Indication: Hypertension
     Dosage: 100.0MG UNKNOWN
     Route: 048

REACTIONS (1)
  - Death [Fatal]
